FAERS Safety Report 9984341 (Version 1)
Quarter: 2014Q1

REPORT INFORMATION
  Report Type: Report from Study
  Country: US (occurrence: US)
  Receive Date: 20140304
  Receipt Date: 20140304
  Transmission Date: 20141002
  Serious: No
  Sender: FDA-Public Use
  Company Number: US-ABBVIE-13P-163-1088272-00

PATIENT
  Age: 49 Year
  Sex: Female

DRUGS (6)
  1. HUMIRA [Suspect]
     Indication: PSORIASIS
     Dates: start: 201105, end: 201106
  2. PRILOSEC [Concomitant]
     Indication: GASTROOESOPHAGEAL REFLUX DISEASE
  3. FLONASE [Concomitant]
     Indication: SEASONAL ALLERGY
  4. CLARITIN [Concomitant]
     Indication: SEASONAL ALLERGY
  5. ESTRADIOL [Concomitant]
     Indication: HORMONE REPLACEMENT THERAPY
  6. ESTRADIOL [Concomitant]
     Indication: HYSTERECTOMY

REACTIONS (1)
  - Psoriasis [Not Recovered/Not Resolved]
